FAERS Safety Report 6861943-2 (Version None)
Quarter: 2010Q3

REPORT INFORMATION
  Report Type: 
  Country: None (occurrence: None)
  Receive Date: 20100720
  Receipt Date: 20100720
  Transmission Date: 20110219
  Serious: Yes (Life-Threatening, Hospitalization)
  Sender: FDA-Public Use
  Company Number: None

PATIENT
  Age: 53 Year
  Sex: Male
  Weight: 66 kg

DRUGS (1)
  1. FLEBOGAMMA 5% DIF [Suspect]
     Indication: HYPOGAMMAGLOBULINAEMIA
     Dosage: 25 GRAMS ONCE IV DRIP
     Route: 041
     Dates: start: 20100713, end: 20100713

REACTIONS (8)
  - CHILLS [None]
  - HYPOTENSION [None]
  - INFUSION RELATED REACTION [None]
  - MALAISE [None]
  - MEMORY IMPAIRMENT [None]
  - OXYGEN SATURATION DECREASED [None]
  - REBOUND EFFECT [None]
  - TACHYCARDIA [None]
